FAERS Safety Report 6196845-0 (Version None)
Quarter: 2009Q2

REPORT INFORMATION
  Report Type: 
  Country: None (occurrence: None)
  Receive Date: 20090520
  Receipt Date: 20090513
  Transmission Date: 20091009
  Serious: Yes (Other)
  Sender: FDA-Public Use
  Company Number: GB-WYE-G03679109

PATIENT
  Sex: Male

DRUGS (1)
  1. REFACTO [Suspect]
     Dosage: UNKNOWN

REACTIONS (1)
  - FACTOR VIII INHIBITION [None]
